FAERS Safety Report 5108229-4 (Version None)
Quarter: 2006Q3

REPORT INFORMATION
  Report Type: 
  Country: None (occurrence: None)
  Receive Date: 20060914
  Receipt Date: 20060914
  Transmission Date: 20061208
  Serious: Yes (Hospitalization)
  Sender: FDA-Public Use
  Company Number: None

PATIENT
  Age: 63 Year
  Sex: Male

DRUGS (12)
  1. HUMULIN 70/30 [Suspect]
     Indication: DIABETES MELLITUS
     Dosage: UNITS SC QAM THEN 20 UNITS SC
     Route: 058
     Dates: start: 20060703, end: 20060713
  2. ACCU-CHEK COMFORT CV-GLUCOSE-TEST STRIP [Concomitant]
  3. ALBUTEROL SULFATE AND IPRATROPIUM BROMIDE [Concomitant]
  4. BUPROPION HCL [Concomitant]
  5. CARVEDILOL [Concomitant]
  6. CITRATE OF MAGNESIA [Concomitant]
  7. DIAPER ADULT MEDIUM [Concomitant]
  8. LANOXIN [Concomitant]
  9. ENALAPRIL MALEATE [Concomitant]
  10. FLUNISOLIDE NASAL SPRAY [Concomitant]
  11. FUROSEMIDE [Concomitant]
  12. INSULIN NOVOLIN 70/30 -NPH/REG [Concomitant]

REACTIONS (6)
  - HYPOGLYCAEMIA [None]
  - LETHARGY [None]
  - MENTAL STATUS CHANGES [None]
  - NAUSEA [None]
  - ORAL INTAKE REDUCED [None]
  - VOMITING [None]
